FAERS Safety Report 5813072-4 (Version None)
Quarter: 2008Q3

REPORT INFORMATION
  Report Type: 
  Country: None (occurrence: None)
  Receive Date: 20080717
  Receipt Date: 20071218
  Transmission Date: 20090109
  Serious: No
  Sender: FDA-Public Use
  Company Number: A0699465A

PATIENT
  Age: 49 Year

DRUGS (1)
  1. NICORETTE (MINT) [Suspect]
     Dates: start: 20071113, end: 20071210

REACTIONS (1)
  - MALAISE [None]
